FAERS Safety Report 5868075-0 (Version None)
Quarter: 2008Q3

REPORT INFORMATION
  Report Type: 
  Country: None (occurrence: None)
  Receive Date: 20080902
  Receipt Date: 20080403
  Transmission Date: 20090109
  Serious: No
  Sender: FDA-Public Use
  Company Number: US-ABBOTT-08P-163-0445794-00

PATIENT
  Sex: Male
  Weight: 118.95 kg

DRUGS (2)
  1. DEPAKOTE ER [Suspect]
     Indication: EPILEPSY
     Dosage: 2 - 500MG TABS Q AM
     Route: 048
     Dates: start: 20060101
  2. DEPAKOTE ER [Suspect]
     Indication: MIGRAINE

REACTIONS (6)
  - ALOPECIA [None]
  - ANTICONVULSANT DRUG LEVEL BELOW THERAPEUTIC [None]
  - HAEMATOCHEZIA [None]
  - HAEMORRHOIDS [None]
  - MOOD SWINGS [None]
  - WEIGHT INCREASED [None]
